FAERS Safety Report 19896248 (Version 1)
Quarter: 2021Q3

REPORT INFORMATION
  Report Type: Report from Study
  Country: US (occurrence: US)
  Receive Date: 20210929
  Receipt Date: 20210929
  Transmission Date: 20211014
  Serious: Yes (Hospitalization)
  Sender: FDA-Public Use
  Company Number: US-TAIHO ONCOLOGY  INC-EU-2021-03038

PATIENT
  Age: 66 Year
  Sex: Male

DRUGS (12)
  1. CARDIZEM CD [Concomitant]
     Active Substance: DILTIAZEM HYDROCHLORIDE
  2. PANTOPRAZOLE [Concomitant]
     Active Substance: PANTOPRAZOLE
  3. VITAMIN D3 [Concomitant]
     Active Substance: CHOLECALCIFEROL
  4. OXALIPLATIN. [Concomitant]
     Active Substance: OXALIPLATIN
  5. CENTRUM CHW [Concomitant]
  6. LONSURF [Suspect]
     Active Substance: TIPIRACIL HYDROCHLORIDE\TRIFLURIDINE
     Indication: APPENDIX CANCER
     Dosage: CURRENT CYCLE UNKNOWN
     Route: 048
     Dates: start: 20190412
  7. ALDACTONE [Concomitant]
     Active Substance: SPIRONOLACTONE
  8. AVASTIN [Concomitant]
     Active Substance: BEVACIZUMAB
  9. PROZAC [Concomitant]
     Active Substance: FLUOXETINE HYDROCHLORIDE
  10. SOTALOL HCL [Concomitant]
     Active Substance: SOTALOL
  11. ELIQUIS [Concomitant]
     Active Substance: APIXABAN
  12. LOPERAMIDE [Concomitant]
     Active Substance: LOPERAMIDE

REACTIONS (1)
  - Surgery [Not Recovered/Not Resolved]

NARRATIVE: CASE EVENT DATE: 202105
